FAERS Safety Report 8799689 (Version 2)
Quarter: 2013Q4

REPORT INFORMATION
  Report Type: Spontaneous
  Country: US (occurrence: US)
  Receive Date: 20120919
  Receipt Date: 20131101
  Transmission Date: 20140711
  Serious: No
  Sender: FDA-Public Use
  Company Number: US-009507513-1208USA001252

PATIENT
  Age: 64 Year
  Sex: Male
  Weight: 56.69 kg

DRUGS (3)
  1. PEG-INTRON [Suspect]
     Dosage: 0.5 ML, QW
     Route: 058
  2. REBETOL [Suspect]
  3. LISINOPRIL [Concomitant]

REACTIONS (4)
  - Asthenia [Unknown]
  - Fatigue [Unknown]
  - Decreased appetite [Unknown]
  - Nausea [Unknown]
